FAERS Safety Report 21592571 (Version 1)
Quarter: 2022Q4

REPORT INFORMATION
  Report Type: Spontaneous
  Country: US (occurrence: None)
  Receive Date: 20221112
  Receipt Date: 20221112
  Transmission Date: 20230113
  Serious: Yes (Hospitalization)
  Sender: FDA-Public Use
  Company Number: None

PATIENT
  Age: 67 Year
  Sex: Male
  Weight: 98.88 kg

DRUGS (13)
  1. CAPECITABINE [Suspect]
     Active Substance: CAPECITABINE
     Indication: Colon cancer
     Dosage: FREQUENCY : TWICE A DAY;?
     Route: 048
     Dates: end: 20221103
  2. CAPECITABINE [Suspect]
     Active Substance: CAPECITABINE
     Indication: Colon cancer
     Dosage: FREQUENCY : TWICE A DAY;?
     Route: 048
     Dates: start: 20221103
  3. FLECAINIDE [Concomitant]
     Active Substance: FLECAINIDE
  4. IRON [Concomitant]
     Active Substance: IRON
  5. MENS MULTIVITAMIN [Concomitant]
  6. ONDANSETRON [Concomitant]
     Active Substance: ONDANSETRON
  7. OXALIPLATIN [Concomitant]
     Active Substance: OXALIPLATIN
  8. PROCHLORPERAZINE [Concomitant]
     Active Substance: PROCHLORPERAZINE
  9. QUVIVIQ [Concomitant]
     Active Substance: DARIDOREXANT
  10. ROSUVASTATIN [Concomitant]
     Active Substance: ROSUVASTATIN
  11. SILDENAFIL [Concomitant]
     Active Substance: SILDENAFIL
  12. TRAMADOL [Concomitant]
     Active Substance: TRAMADOL
  13. XARELTO [Concomitant]
     Active Substance: RIVAROXABAN

REACTIONS (1)
  - Cardiac arrest [None]
